FAERS Safety Report 9349905 (Version 3)
Quarter: 2021Q3

REPORT INFORMATION
  Report Type: Spontaneous
  Country: ES (occurrence: ES)
  Receive Date: 20130614
  Receipt Date: 20210920
  Transmission Date: 20211014
  Serious: Yes (Life-Threatening, Hospitalization)
  Sender: FDA-Public Use
  Company Number: PHHY2013ES058520

PATIENT
  Age: 32 Year
  Sex: Male

DRUGS (17)
  1. HYPERICUM PERFORATUM [Suspect]
     Active Substance: HYPERICUM PERFORATUM WHOLE
     Indication: POSTOPERATIVE CARE
     Dosage: UNK
     Route: 048
  2. ACETAMINOPHEN (PARACETAMOL) [Suspect]
     Active Substance: ACETAMINOPHEN
     Indication: ANALGESIC THERAPY
     Dosage: 500 MG, UNKNOWN
     Route: 048
  3. ISPAGHULA [Suspect]
     Active Substance: HERBALS\PLANTAGO OVATA SEED
     Indication: POST PROCEDURAL DISCHARGE
     Dosage: UNK
     Route: 048
  4. PASSIFLORA INCARNATA [Suspect]
     Active Substance: HERBALS\HOMEOPATHICS\PASSIFLORA INCARNATA FLOWERING TOP
     Indication: POSTOPERATIVE CARE
     Dosage: UNK
     Route: 048
  5. METOCLOPRAMIDE. [Suspect]
     Active Substance: METOCLOPRAMIDE
     Indication: POSTOPERATIVE CARE
     Dosage: UNK
     Route: 048
     Dates: start: 2012
  6. IBUPROFEN. [Suspect]
     Active Substance: IBUPROFEN
     Indication: POST PROCEDURAL DISCHARGE
  7. OXAZEPAM. [Suspect]
     Active Substance: OXAZEPAM
     Indication: POST PROCEDURAL DISCHARGE
     Dosage: UNK
     Route: 048
     Dates: start: 2012
  8. IBUPROFEN. [Suspect]
     Active Substance: IBUPROFEN
     Indication: POSTOPERATIVE CARE
     Dosage: UNK
     Route: 048
     Dates: start: 2012
  9. DIMETICONA [Suspect]
     Active Substance: DIMETHICONE
     Indication: POSTOPERATIVE CARE
  10. METOCLOPRAMIDE. [Suspect]
     Active Substance: METOCLOPRAMIDE
     Indication: POST PROCEDURAL DISCHARGE
  11. OXAZEPAM. [Suspect]
     Active Substance: OXAZEPAM
     Indication: POSTOPERATIVE CARE
  12. ACETAMINOPHEN (PARACETAMOL) [Suspect]
     Active Substance: ACETAMINOPHEN
     Indication: POSTOPERATIVE CARE
  13. DIMETICONA [Suspect]
     Active Substance: DIMETHICONE
     Indication: POST PROCEDURAL DISCHARGE
     Dosage: UNK
     Route: 048
     Dates: start: 2012
  14. DIPYRONE [Suspect]
     Active Substance: DIPYRONE
     Indication: POST PROCEDURAL DISCHARGE
     Dosage: 650 MG, UNKNOWN
     Route: 048
     Dates: start: 2012
  15. ACETAMINOPHEN (PARACETAMOL) [Suspect]
     Active Substance: ACETAMINOPHEN
     Indication: POST PROCEDURAL DISCHARGE
  16. ISPAGHULA [Suspect]
     Active Substance: HERBALS\PLANTAGO OVATA SEED
     Indication: POSTOPERATIVE CARE
  17. DIPYRONE [Suspect]
     Active Substance: DIPYRONE
     Indication: POSTOPERATIVE CARE

REACTIONS (20)
  - Arthralgia [Recovered/Resolved]
  - Hepatomegaly [Recovered/Resolved]
  - Jaundice [Recovered/Resolved]
  - Choluria [Recovering/Resolving]
  - Pyrexia [Recovered/Resolved]
  - Myalgia [Recovered/Resolved]
  - Hypoproteinaemia [Recovered/Resolved]
  - Renal failure [Recovered/Resolved]
  - Drug reaction with eosinophilia and systemic symptoms [Recovered/Resolved]
  - Rash erythematous [Recovering/Resolving]
  - Pleural effusion [Recovered/Resolved]
  - Oedema [Recovered/Resolved]
  - Oedema peripheral [Recovered/Resolved]
  - Abdominal pain [Recovered/Resolved]
  - Acute generalised exanthematous pustulosis [Recovering/Resolving]
  - Leukocytosis [Recovered/Resolved]
  - Ascites [Recovered/Resolved]
  - Diarrhoea [Recovered/Resolved]
  - Pericardial effusion [Recovered/Resolved]
  - Hepatic failure [Recovered/Resolved]

NARRATIVE: CASE EVENT DATE: 2012
